FAERS Safety Report 24665562 (Version 1)
Quarter: 2024Q4

REPORT INFORMATION
  Report Type: Spontaneous
  Country: GB (occurrence: GB)
  Receive Date: 20241126
  Receipt Date: 20241126
  Transmission Date: 20250115
  Serious: Yes (Disabling, Other)
  Sender: ELI LILLY AND COMPANY
  Company Number: GB-MHRA-TPP31288277C9595318YC1731487934488

PATIENT
  Age: 62 Year
  Sex: Male
  Weight: 90 kg

DRUGS (8)
  1. MOUNJARO [Suspect]
     Active Substance: TIRZEPATIDE
     Indication: Ill-defined disorder
     Dosage: 2.5 MG, WEEKLY (1/W)
     Route: 023
     Dates: start: 20241009, end: 20241106
  2. DAPAGLIFLOZIN [Concomitant]
     Active Substance: DAPAGLIFLOZIN
     Indication: Ill-defined disorder
     Dosage: TAKE ONE DAILY
     Dates: start: 20240811
  3. GLICLAZIDE [Concomitant]
     Active Substance: GLICLAZIDE
     Indication: Ill-defined disorder
     Dosage: TWO TABLETS TO BE TAKEN TWICE DAILY
     Dates: start: 20240811
  4. INSTANT [Concomitant]
     Active Substance: ALCOHOL
     Indication: Ill-defined disorder
     Dosage: USE AS DIRECTED
     Dates: start: 20240811
  5. METFORMIN [Concomitant]
     Active Substance: METFORMIN HYDROCHLORIDE
     Indication: Diabetes mellitus
     Dosage: TAKE 2 TWICE DAILY FOR YOUR DIABETES
     Dates: start: 20240811
  6. RAMIPRIL [Concomitant]
     Active Substance: RAMIPRIL
     Indication: Blood pressure measurement
     Dosage: TAKE ONE TABLET ONCE DAILY FOR YOUR BLOOD PRESSURE
     Dates: start: 20240811
  7. SILDENAFIL [Concomitant]
     Active Substance: SILDENAFIL
     Indication: Product used for unknown indication
     Dosage: USE AS DIRECTED
     Dates: start: 20240811
  8. SIMVASTATIN [Concomitant]
     Active Substance: SIMVASTATIN
     Indication: Blood cholesterol
     Dosage: TAKE ONE IN THE EVENING  TO LOWER YOUR CHOLESTEROL
     Dates: start: 20240811

REACTIONS (3)
  - Chest discomfort [Recovered/Resolved]
  - Incorrect route of product administration [Unknown]
  - Off label use [Unknown]

NARRATIVE: CASE EVENT DATE: 20241009
